FAERS Safety Report 7416877-1 (Version None)
Quarter: 2011Q2

REPORT INFORMATION
  Report Type: 
  Country: None (occurrence: None)
  Receive Date: 20110407
  Receipt Date: 20110329
  Transmission Date: 20111010
  Serious: Yes (Hospitalization)
  Sender: FDA-Public Use
  Company Number: 2010GW000964

PATIENT
  Age: 18 Month
  Sex: Male

DRUGS (1)
  1. FLECAINIDE ACETATE [Suspect]
     Indication: TACHYCARDIA
     Dosage: 1000 MG;X1;PO ; PO
     Route: 048

REACTIONS (13)
  - GRAND MAL CONVULSION [None]
  - BLOOD PRESSURE DECREASED [None]
  - HEART RATE DECREASED [None]
  - NODAL RHYTHM [None]
  - ALKALOSIS [None]
  - ATRIOVENTRICULAR DISSOCIATION [None]
  - TOXICITY TO VARIOUS AGENTS [None]
  - ELECTROCARDIOGRAM QRS COMPLEX PROLONGED [None]
  - ELECTROCARDIOGRAM QT PROLONGED [None]
  - VENTRICULAR TACHYCARDIA [None]
  - ACIDOSIS [None]
  - COMA SCALE ABNORMAL [None]
  - ACCIDENTAL OVERDOSE [None]
